FAERS Safety Report 4782839-6 (Version None)
Quarter: 2005Q3

REPORT INFORMATION
  Report Type: 
  Country: None (occurrence: None)
  Receive Date: 20050914
  Receipt Date: 20050608
  Transmission Date: 20060218
  Serious: Yes (Death, Hospitalization)
  Sender: FDA-Public Use
  Company Number: 163-20785-05060128

PATIENT
  Age: 80 Year
  Sex: Female

DRUGS (11)
  1. THALOMID [Suspect]
     Indication: MULTIPLE MYELOMA
     Dosage: 150 MG, DAILY, ORAL
     Route: 048
     Dates: start: 20030627, end: 20031001
  2. THALOMID [Suspect]
  3. MS CONTIN [Concomitant]
  4. DURAGESIC-100 [Concomitant]
  5. SYNTHROID [Concomitant]
  6. REMERON [Concomitant]
  7. DDAVP [Concomitant]
  8. DIFLUCAN [Concomitant]
  9. NYSTATIN [Concomitant]
  10. PROTONIX [Concomitant]
  11. DECADRON [Concomitant]

REACTIONS (5)
  - DEATH [None]
  - DEHYDRATION [None]
  - DISEASE PROGRESSION [None]
  - DYSPHAGIA [None]
  - JAW DISORDER [None]
